FAERS Safety Report 6679524-2 (Version None)
Quarter: 2010Q2

REPORT INFORMATION
  Report Type: 
  Country: None (occurrence: None)
  Receive Date: 20100413
  Receipt Date: 20100331
  Transmission Date: 20101027
  Serious: Yes (Other)
  Sender: FDA-Public Use
  Company Number: PHHY2010US20645

PATIENT
  Sex: Female

DRUGS (12)
  1. RECLAST [Suspect]
     Dosage: UNK
     Route: 042
     Dates: start: 20090501
  2. NOROXIN [Concomitant]
  3. CITRACAL [Concomitant]
  4. MAGNESIUM [Concomitant]
     Dosage: 4 TIMES A DAY
  5. VITAMIN D [Concomitant]
     Dosage: 4 TIMES A DAY
  6. VITAMINS [Concomitant]
  7. PRESERVISION /USA/ [Concomitant]
  8. AREDS [Concomitant]
  9. METAMUCIL-2 [Concomitant]
  10. NEXIUM [Concomitant]
  11. EMU OIL [Concomitant]
  12. ERYTHROCIN                              /CAN/ [Concomitant]

REACTIONS (5)
  - BONE PAIN [None]
  - FALL [None]
  - FRACTURE DELAYED UNION [None]
  - HEAD INJURY [None]
  - UPPER LIMB FRACTURE [None]
